FAERS Safety Report 15256652 (Version 2)
Quarter: 2018Q3

REPORT INFORMATION
  Report Type: Report from Study
  Country: BE (occurrence: BE)
  Receive Date: 20180808
  Receipt Date: 20180906
  Transmission Date: 20181010
  Serious: Yes (Other)
  Sender: FDA-Public Use
  Company Number: PHHO2014BE017530

PATIENT
  Age: 79 Year
  Sex: Male
  Weight: 85.5 kg

DRUGS (1)
  1. OFATUMUMAB [Suspect]
     Active Substance: OFATUMUMAB
     Indication: CHRONIC LYMPHOCYTIC LEUKAEMIA
     Dosage: CYCLICALLY
     Route: 042
     Dates: start: 20120619, end: 20140103

REACTIONS (2)
  - Alanine aminotransferase increased [Not Recovered/Not Resolved]
  - Hepatitis B reactivation [Not Recovered/Not Resolved]

NARRATIVE: CASE EVENT DATE: 20140224
